FAERS Safety Report 8351485-X (Version None)
Quarter: 2012Q2

REPORT INFORMATION
  Report Type: 
  Country: None (occurrence: None)
  Receive Date: 20120510
  Receipt Date: 20120424
  Transmission Date: 20120825
  Serious: Yes (Other)
  Sender: FDA-Public Use
  Company Number: CHPA2012US009220

PATIENT
  Age: 44 Year
  Sex: Female

DRUGS (3)
  1. ACETYLSALICYLIC ACID/PARACETAMOL [Concomitant]
  2. EXCEDRIN (MIGRAINE) [Suspect]
     Indication: HEADACHE
     Dosage: 2 DF, PRN
     Route: 048
     Dates: end: 20120301
  3. ANTIBIOTICS [Concomitant]

REACTIONS (3)
  - NEOPLASM MALIGNANT [None]
  - RASH [None]
  - OFF LABEL USE [None]
